FAERS Safety Report 4301561-3 (Version None)
Quarter: 2004Q1

REPORT INFORMATION
  Report Type: 
  Country: None (occurrence: None)
  Receive Date: 20040219
  Receipt Date: 20040212
  Transmission Date: 20041129
  Serious: Yes (Death)
  Sender: FDA-Public Use
  Company Number: US-JNJFOC-20040203064

PATIENT
  Age: 92 Year
  Sex: Female

DRUGS (3)
  1. DURAGESIC [Suspect]
     Indication: PAIN
     Dosage: 25 UG/HR
  2. ACIPHEX [Concomitant]
  3. TOPROL (METOPROLOL SUCCINATE) [Concomitant]

REACTIONS (1)
  - CARDIAC DISORDER [None]
